FAERS Safety Report 24167412 (Version 7)
Quarter: 2024Q4

REPORT INFORMATION
  Report Type: Spontaneous
  Country: SE (occurrence: SE)
  Receive Date: 20240802
  Receipt Date: 20241018
  Transmission Date: 20250115
  Serious: Yes (Other)
  Sender: PFIZER
  Company Number: SE-PFIZER INC-202400226711

PATIENT
  Age: 66 Year
  Sex: Female
  Weight: 68 kg

DRUGS (3)
  1. ESTRADIOL [Suspect]
     Active Substance: ESTRADIOL
     Indication: Hormone therapy
     Dosage: 7.5 UG, DAILY (CHANGE EVERY 3 MONTHS)
     Route: 067
     Dates: start: 20181101, end: 20230301
  2. ESTRADIOL [Suspect]
     Active Substance: ESTRADIOL
     Dosage: 7.5 UG, DAILY (CHANGE EVERY 3 MONTHS)
     Route: 067
     Dates: end: 202309
  3. FLUTICASONE PROPIONATE [Concomitant]
     Active Substance: FLUTICASONE PROPIONATE
     Indication: Asthma
     Dosage: 1 DF, 2X/DAY

REACTIONS (4)
  - Vaginal ulceration [Unknown]
  - Vaginal haemorrhage [Recovered/Resolved]
  - Injury associated with device [Recovered/Resolved]
  - Device physical property issue [Recovered/Resolved]

NARRATIVE: CASE EVENT DATE: 20230101
